FAERS Safety Report 9828295 (Version 1)
Quarter: 2014Q1

REPORT INFORMATION
  Report Type: Spontaneous
  Country: US (occurrence: US)
  Receive Date: 20140117
  Receipt Date: 20140117
  Transmission Date: 20141002
  Serious: No
  Sender: FDA-Public Use
  Company Number: US-PFIZER INC-2014015268

PATIENT
  Sex: Female

DRUGS (1)
  1. ALPRAZOLAM [Suspect]
     Indication: RELAXATION THERAPY
     Dosage: 0.5 MG, UNK

REACTIONS (5)
  - Dizziness [Unknown]
  - Nausea [Unknown]
  - Abnormal dreams [Unknown]
  - Anxiety [Unknown]
  - Dyskinesia [Unknown]
